FAERS Safety Report 11253434 (Version 2)
Quarter: 2015Q3

REPORT INFORMATION
  Report Type: Spontaneous
  Country: SE (occurrence: SE)
  Receive Date: 20150709
  Receipt Date: 20150918
  Transmission Date: 20151125
  Serious: Yes (Other)
  Sender: FDA-Public Use
  Company Number: SE-ROCHE-1605552

PATIENT
  Age: 74 Year
  Sex: Female

DRUGS (1)
  1. MABTHERA [Suspect]
     Active Substance: RITUXIMAB
     Indication: RHEUMATOID ARTHRITIS
     Route: 042
     Dates: start: 20120918, end: 20140401

REACTIONS (1)
  - Temporal arteritis [Recovered/Resolved]

NARRATIVE: CASE EVENT DATE: 20140401
